FAERS Safety Report 15132702 (Version 2)
Quarter: 2018Q3

REPORT INFORMATION
  Report Type: Spontaneous
  Country: LV (occurrence: LV)
  Receive Date: 20180712
  Receipt Date: 20180730
  Transmission Date: 20181010
  Serious: Yes (Other)
  Sender: FDA-Public Use
  Company Number: LV-KADMON PHARMACEUTICALS, LLC-KAD-201807-01342

PATIENT
  Age: 64 Year
  Sex: Female

DRUGS (2)
  1. RIBAVIRIN. [Suspect]
     Active Substance: RIBAVIRIN
     Indication: HEPATITIS C
     Dosage: 1200 MG
     Route: 048
     Dates: start: 20180528, end: 20180608
  2. EPCLUSA [Suspect]
     Active Substance: SOFOSBUVIR\VELPATASVIR
     Indication: HEPATITIS C
     Dosage: 1 DOSAGE FORMS
     Route: 048
     Dates: start: 20180528, end: 20180608

REACTIONS (3)
  - Hallucination [Recovered/Resolved]
  - Palpitations [Recovered/Resolved]
  - Fear of death [Recovered/Resolved]

NARRATIVE: CASE EVENT DATE: 20180602
